FAERS Safety Report 7964138-4 (Version None)
Quarter: 2011Q4

REPORT INFORMATION
  Report Type: 
  Country: None (occurrence: None)
  Receive Date: 20111121
  Receipt Date: 20110914
  Transmission Date: 20120403
  Serious: No
  Sender: FDA-Public Use
  Company Number: 1000023853

PATIENT
  Age: 47 Year
  Sex: Male

DRUGS (5)
  1. LANTUS (INSULIN GLARGINE) INSULIN GLARGINE) [Concomitant]
  2. VIIBRYD [Suspect]
     Indication: DEPRESSION
     Dosage: 10 MG (10 MG, 1 IN 1 D),ORAL
     Route: 048
     Dates: start: 20110729, end: 20110801
  3. CRESTOR [Concomitant]
  4. CYMBALTA (DULOXETINE HYDROCHLORIDE) DULOXETINE HYDROCHLORIDE) [Concomitant]
  5. NOVOLOG  (INSULIN ASPART) (INSULIN ASPART) [Concomitant]

REACTIONS (2)
  - CONFUSIONAL STATE [None]
  - DISORIENTATION [None]
